FAERS Safety Report 21631633 (Version 1)
Quarter: 2022Q4

REPORT INFORMATION
  Report Type: Report from Study
  Country: TN (occurrence: TN)
  Receive Date: 20221123
  Receipt Date: 20221123
  Transmission Date: 20230112
  Serious: Yes (Other)
  Sender: FDA-Public Use
  Company Number: TN-SUN PHARMACEUTICAL INDUSTRIES LTD-2022R1-365107

PATIENT

DRUGS (3)
  1. BETAMETHASONE [Suspect]
     Active Substance: BETAMETHASONE
     Indication: Pustular psoriasis
     Dosage: UNK
     Route: 064
  2. PREDNISONE [Suspect]
     Active Substance: PREDNISONE
     Indication: Pustular psoriasis
     Dosage: 1 MILLIGRAM/KILOGRAM, DAILY
     Route: 064
  3. DAPSONE [Suspect]
     Active Substance: DAPSONE
     Indication: Pustular psoriasis
     Dosage: 100 MILLIGRAM, DAILY
     Route: 064

REACTIONS (4)
  - Foetal exposure during pregnancy [Unknown]
  - Low birth weight baby [Unknown]
  - Oligohydramnios [Unknown]
  - Premature baby [Unknown]
